FAERS Safety Report 8076660-3 (Version None)
Quarter: 2012Q1

REPORT INFORMATION
  Report Type: 
  Country: None (occurrence: None)
  Receive Date: 20120127
  Receipt Date: 20120123
  Transmission Date: 20120608
  Serious: Yes (Death, Hospitalization, Other)
  Sender: FDA-Public Use
  Company Number: FR-JNJFOC-20120100240

PATIENT
  Sex: Female

DRUGS (9)
  1. TRAMADOL HCL [Suspect]
     Indication: PRODUCT USED FOR UNKNOWN INDICATION
     Route: 065
     Dates: start: 20110901
  2. EPOETIN ALFA [Concomitant]
     Indication: PRODUCT USED FOR UNKNOWN INDICATION
     Route: 065
  3. ACTONEL [Concomitant]
     Indication: PRODUCT USED FOR UNKNOWN INDICATION
     Route: 065
  4. CLONAZEPAM [Concomitant]
     Indication: PRODUCT USED FOR UNKNOWN INDICATION
     Route: 065
  5. DEROXAT [Concomitant]
     Indication: PRODUCT USED FOR UNKNOWN INDICATION
     Route: 065
  6. CORTANCYL [Concomitant]
     Indication: PRODUCT USED FOR UNKNOWN INDICATION
     Route: 065
  7. OMEPRAZOLE [Concomitant]
     Indication: PRODUCT USED FOR UNKNOWN INDICATION
     Route: 065
  8. LEVOTHYROXINE SODIUM [Concomitant]
     Indication: PRODUCT USED FOR UNKNOWN INDICATION
     Route: 065
  9. NILEVAR [Concomitant]
     Indication: PRODUCT USED FOR UNKNOWN INDICATION
     Route: 065

REACTIONS (17)
  - SOMNOLENCE [None]
  - NORMOCHROMIC NORMOCYTIC ANAEMIA [None]
  - CARDIOGENIC SHOCK [None]
  - MULTI-ORGAN FAILURE [None]
  - OVERDOSE [None]
  - INFLAMMATION [None]
  - LEUKOCYTOSIS [None]
  - HYPERLACTACIDAEMIA [None]
  - RESPIRATORY DEPRESSION [None]
  - THROMBOCYTOPENIA [None]
  - HEPATITIS FULMINANT [None]
  - BRONCHIAL OBSTRUCTION [None]
  - METABOLIC ACIDOSIS [None]
  - ASTHENIA [None]
  - HYPERKALAEMIA [None]
  - CYTOLYTIC HEPATITIS [None]
  - CHOLESTASIS [None]
